FAERS Safety Report 6562582-3 (Version None)
Quarter: 2010Q1

REPORT INFORMATION
  Report Type: 
  Country: None (occurrence: None)
  Receive Date: 20100130
  Receipt Date: 20091216
  Transmission Date: 20100710
  Serious: No
  Sender: FDA-Public Use
  Company Number: US-ABBOTT-09P-163-0609698-00

PATIENT
  Sex: Female
  Weight: 81.266 kg

DRUGS (3)
  1. HUMIRA [Suspect]
     Indication: CROHN'S DISEASE
     Dosage: DAY 1
     Dates: start: 20091117, end: 20091117
  2. HUMIRA [Suspect]
  3. PREDNISONE [Concomitant]
     Indication: DRUG USE FOR UNKNOWN INDICATION

REACTIONS (10)
  - ABNORMAL DREAMS [None]
  - ARRHYTHMIA [None]
  - DRUG INEFFECTIVE [None]
  - EPISTAXIS [None]
  - HAEMORRHAGE [None]
  - HEADACHE [None]
  - INCREASED TENDENCY TO BRUISE [None]
  - INJECTION SITE PAIN [None]
  - NAUSEA [None]
  - PAIN [None]
